FAERS Safety Report 8128944-8 (Version None)
Quarter: 2012Q1

REPORT INFORMATION
  Report Type: 
  Country: None (occurrence: None)
  Receive Date: 20120210
  Receipt Date: 20110613
  Transmission Date: 20120608
  Serious: No
  Sender: FDA-Public Use
  Company Number: US-BRISTOL-MYERS SQUIBB COMPANY-15826985

PATIENT
  Age: 67 Year
  Sex: Female

DRUGS (8)
  1. ORENCIA [Suspect]
     Dosage: EVERY TWO WEEKS
  2. ASPIRIN [Concomitant]
     Indication: CEREBROVASCULAR ACCIDENT
  3. LEVOXYL [Concomitant]
  4. FISH OIL [Concomitant]
  5. BACLOFEN [Concomitant]
     Indication: MUSCLE RELAXANT THERAPY
  6. METHOTREXATE [Suspect]
  7. MULTI-VITAMIN [Concomitant]
  8. DILAUDID [Concomitant]

REACTIONS (2)
  - RHEUMATOID ARTHRITIS [None]
  - GOUT [None]
